FAERS Safety Report 7764261-3 (Version None)
Quarter: 2011Q3

REPORT INFORMATION
  Report Type: 
  Country: None (occurrence: None)
  Receive Date: 20110921
  Receipt Date: 20110913
  Transmission Date: 20111222
  Serious: Yes (Hospitalization)
  Sender: FDA-Public Use
  Company Number: AR-AMGEN-ARGCT2011046783

PATIENT
  Age: 64 Year
  Sex: Female
  Weight: 69.4 kg

DRUGS (4)
  1. ATLANSIL [Concomitant]
     Indication: HYPERTENSION
     Dosage: 200 MG, UNK
  2. PLACEBO [Suspect]
     Indication: ANAEMIA
  3. ASPIRIN [Concomitant]
     Indication: HYPERTENSION
     Dosage: 100 MG, UNK
  4. BLINDED DARBEPOETIN ALFA [Suspect]
     Indication: ANAEMIA

REACTIONS (1)
  - PSYCHOTIC DISORDER [None]
